FAERS Safety Report 13319938 (Version 2)
Quarter: 2017Q1

REPORT INFORMATION
  Report Type: Spontaneous
  Country: CA (occurrence: CA)
  Receive Date: 20170309
  Receipt Date: 20170315
  Transmission Date: 20170428
  Serious: Yes (Other)
  Sender: FDA-Public Use
  Company Number: CA-ORION CORPORATION ORION PHARMA-TREX2017-0750

PATIENT
  Age: 57 Year
  Sex: Female

DRUGS (3)
  1. METHOTREXATE (TRADE NAME UNKNOWN) [Suspect]
     Active Substance: METHOTREXATE
     Route: 065
  2. PLAQUENIL [Suspect]
     Active Substance: HYDROXYCHLOROQUINE SULFATE
     Route: 065
  3. NAPROXEN. [Suspect]
     Active Substance: NAPROXEN
     Route: 048

REACTIONS (6)
  - Rheumatoid arthritis [Unknown]
  - Depressed mood [Unknown]
  - Exostosis [Unknown]
  - Pleural effusion [Unknown]
  - Pneumothorax [Unknown]
  - Arthropathy [Unknown]

NARRATIVE: CASE EVENT DATE: 20160824
